FAERS Safety Report 4972979-0 (Version None)
Quarter: 2006Q2

REPORT INFORMATION
  Report Type: 
  Country: None (occurrence: None)
  Receive Date: 20060414
  Receipt Date: 20060411
  Transmission Date: 20061013
  Serious: Yes (Life-Threatening, Hospitalization)
  Sender: FDA-Public Use
  Company Number: US-GLAXOSMITHKLINE-A0601393A

PATIENT
  Age: 20 Year
  Sex: Female

DRUGS (3)
  1. LAMICTAL [Suspect]
     Indication: BIPOLAR DISORDER
     Dosage: 100MG PER DAY
     Route: 048
  2. LITHIUM [Concomitant]
  3. UNKNOWN MEDICATION [Concomitant]

REACTIONS (3)
  - INJECTION SITE INFECTION [None]
  - PNEUMONIA [None]
  - STEVENS-JOHNSON SYNDROME [None]
